FAERS Safety Report 26068254 (Version 5)
Quarter: 2025Q4

REPORT INFORMATION
  Report Type: Spontaneous
  Country: UA (occurrence: UA)
  Receive Date: 20251120
  Receipt Date: 20251215
  Transmission Date: 20260118
  Serious: Yes (Death)
  Sender: ROCHE
  Company Number: UA-BoehringerIngelheim-2025-BI-108105

PATIENT
  Age: 77 Year
  Sex: Female
  Weight: 80 kg

DRUGS (4)
  1. ALTEPLASE [Suspect]
     Active Substance: ALTEPLASE
     Indication: Pulmonary embolism
     Dosage: WAS USED 100 MG ACTILYSE INTRAVENOUSLY DRIP FOR 120 MIN
     Route: 041
     Dates: start: 20251102, end: 20251102
  2. ALTEPLASE [Suspect]
     Active Substance: ALTEPLASE
     Indication: Cor pulmonale acute
  3. ASPIRIN [Concomitant]
     Active Substance: ASPIRIN
     Indication: Acute coronary syndrome
     Route: 048
     Dates: start: 20251102, end: 20251102
  4. PLAVIX [Concomitant]
     Active Substance: CLOPIDOGREL BISULFATE
     Indication: Acute coronary syndrome
     Route: 048
     Dates: start: 20251102, end: 20251102

REACTIONS (3)
  - Haemorrhage intracranial [Fatal]
  - Brain oedema [Fatal]
  - Brain dislocation syndrome [Fatal]

NARRATIVE: CASE EVENT DATE: 20251103
